FAERS Safety Report 8287091-5 (Version None)
Quarter: 2012Q2

REPORT INFORMATION
  Report Type: 
  Country: None (occurrence: None)
  Receive Date: 20120416
  Receipt Date: 20120403
  Transmission Date: 20120825
  Serious: Yes (Other)
  Sender: FDA-Public Use
  Company Number: AT-ROCHE-1056418

PATIENT
  Age: 39 Year
  Sex: Female
  Weight: 94 kg

DRUGS (4)
  1. ACTEMRA [Suspect]
     Indication: SPONDYLOARTHROPATHY
     Dates: start: 20090101
  2. AZATHIOPRINE [Concomitant]
  3. CYCLOSPORINE [Concomitant]
  4. SULFASALAZINE [Concomitant]

REACTIONS (3)
  - HYPERTENSIVE CRISIS [None]
  - UNEVALUABLE EVENT [None]
  - RASH [None]
